FAERS Safety Report 18609388 (Version 2)
Quarter: 2020Q4

REPORT INFORMATION
  Report Type: Report from Study
  Country: DE (occurrence: DE)
  Receive Date: 20201214
  Receipt Date: 20201223
  Transmission Date: 20210114
  Serious: Yes (Hospitalization, Other)
  Sender: FDA-Public Use
  Company Number: DE-BRISTOL-MYERS SQUIBB COMPANY-BMS-2020-105770

PATIENT
  Age: 70 Year
  Sex: Female

DRUGS (5)
  1. NIVOLUMAB [Suspect]
     Active Substance: NIVOLUMAB
     Dosage: 162 MILLIGRAM, Q2WK
     Route: 042
     Dates: end: 20180516
  2. NIVOLUMAB [Suspect]
     Active Substance: NIVOLUMAB
     Indication: MALIGNANT MELANOMA
     Dosage: 55 MILLIGRAM, Q3WK
     Route: 042
     Dates: start: 20180125, end: 20180215
  3. IPILIMUMAB [Suspect]
     Active Substance: IPILIMUMAB
     Indication: MALIGNANT MELANOMA
     Dosage: 165 MILLIGRAM, Q3WK
     Route: 042
     Dates: start: 20180125, end: 20180215
  4. ACETYLSALICYLSAEURE [Concomitant]
     Active Substance: ASPIRIN
     Indication: PRODUCT USED FOR UNKNOWN INDICATION
     Dosage: UNK
     Route: 065
  5. NIVOLUMAB [Suspect]
     Active Substance: NIVOLUMAB
     Dosage: 480 MILLIGRAM, Q4WK
     Route: 042
     Dates: start: 20180418, end: 20180828

REACTIONS (7)
  - Cerebrovascular accident [Not Recovered/Not Resolved]
  - Autoimmune hepatitis [Recovered/Resolved]
  - Neutrophilic panniculitis [Recovered/Resolved]
  - Off label use [Unknown]
  - Pyrexia [Unknown]
  - Rash maculo-papular [Recovered/Resolved]
  - General physical health deterioration [Unknown]

NARRATIVE: CASE EVENT DATE: 20180309
